FAERS Safety Report 5377663-X (Version None)
Quarter: 2007Q3

REPORT INFORMATION
  Report Type: 
  Country: None (occurrence: None)
  Receive Date: 20070703
  Receipt Date: 20070622
  Transmission Date: 20080115
  Serious: Yes (Other)
  Sender: FDA-Public Use
  Company Number: US-PFIZER INC-2007034603

PATIENT
  Sex: Male
  Weight: 83 kg

DRUGS (5)
  1. CADUET [Suspect]
     Indication: HYPERTENSION
  2. DETROL LA [Suspect]
     Indication: POLLAKIURIA
     Route: 048
  3. BENICAR [Concomitant]
  4. LISINOPRIL [Concomitant]
  5. ALL OTHER THERAPEUTIC PRODUCTS [Concomitant]

REACTIONS (2)
  - BLOOD PRESSURE INCREASED [None]
  - POLLAKIURIA [None]
